FAERS Safety Report 8323238-X (Version None)
Quarter: 2012Q2

REPORT INFORMATION
  Report Type: 
  Country: None (occurrence: None)
  Receive Date: 20120430
  Receipt Date: 20120423
  Transmission Date: 20120825
  Serious: Yes (Death)
  Sender: FDA-Public Use
  Company Number: DE-ROCHE-1056036

PATIENT
  Sex: Female
  Weight: 63.4 kg

DRUGS (13)
  1. METOPROLOL TARTRATE [Concomitant]
     Dates: start: 20090730
  2. FERRLECIT IV [Concomitant]
     Route: 042
  3. RENACET [Concomitant]
  4. SIMVASTATIN [Concomitant]
  5. METAMIZOL [Concomitant]
  6. MIRCERA [Suspect]
     Indication: NEPHROGENIC ANAEMIA
     Dosage: LAST DOSE PRIOR TO SAE: 14/FEB/2012
     Route: 042
     Dates: start: 20111222
  7. TORSEMIDE [Concomitant]
     Dates: start: 20100821
  8. DREISAVIT N [Concomitant]
  9. ACETYLSALICYLSAURE [Concomitant]
     Dates: start: 20090730
  10. ALLOPURINOL [Concomitant]
     Dates: start: 20090730
  11. ERGOCALCIFEROL [Concomitant]
     Dates: start: 20100526
  12. ATACAND [Concomitant]
     Dates: start: 20090917
  13. CALCITRIOL [Concomitant]

REACTIONS (1)
  - SUDDEN CARDIAC DEATH [None]
